FAERS Safety Report 8400940-2 (Version None)
Quarter: 2012Q2

REPORT INFORMATION
  Report Type: 
  Country: None (occurrence: None)
  Receive Date: 20120601
  Receipt Date: 20120523
  Transmission Date: 20120825
  Serious: Yes (Hospitalization)
  Sender: FDA-Public Use
  Company Number: US-BIOGENIDEC-2012BI003169

PATIENT
  Age: 51 Year
  Sex: Female

DRUGS (18)
  1. MIRALAX [Concomitant]
  2. CRANBERRY (NOS) [Concomitant]
  3. BUMEX [Concomitant]
  4. TYSABRI [Suspect]
     Indication: MULTIPLE SCLEROSIS
     Route: 042
     Dates: start: 20110901
  5. LEXAPRO [Concomitant]
  6. BECONASE [Concomitant]
  7. BACLOFEN [Concomitant]
  8. PROVIGIL [Concomitant]
  9. LISINOPRIL [Concomitant]
  10. FLEXERIL [Concomitant]
  11. POTASSIUM CHLORIDE [Concomitant]
  12. VITAMIN B-100 [Concomitant]
  13. LOVAZA [Concomitant]
  14. AMITIZA [Concomitant]
  15. BOWEL FLUSH (NOS) [Concomitant]
  16. VALIUM [Concomitant]
  17. ZOLOFT [Concomitant]
  18. HYDROCODONE BITARTRATE [Concomitant]

REACTIONS (5)
  - PNEUMONIA [None]
  - DEHYDRATION [None]
  - SEPTIC SHOCK [None]
  - DECUBITUS ULCER [None]
  - ULCER [None]
